FAERS Safety Report 7361781-0 (Version None)
Quarter: 2011Q1

REPORT INFORMATION
  Report Type: 
  Country: None (occurrence: None)
  Receive Date: 20110318
  Receipt Date: 20110311
  Transmission Date: 20110831
  Serious: Yes (Life-Threatening, Hospitalization)
  Sender: FDA-Public Use
  Company Number: JP-MERCK-1012USA01289

PATIENT
  Age: 46 Year
  Sex: Male

DRUGS (10)
  1. TOBRACIN (TOBRAMYCIN) [Concomitant]
     Indication: ANTIBIOTIC THERAPY
     Dosage: ONE DROP TO EACH EYE PER DOSE, 6 TIMES A DAY
     Route: 047
     Dates: start: 20101111, end: 20101115
  2. COSOPT [Suspect]
     Indication: OCULAR HYPERTENSION
     Dosage: RIGHT EYE
     Route: 047
     Dates: start: 20101111, end: 20101115
  3. VEGAMOX [Concomitant]
     Indication: ANTIBIOTIC THERAPY
     Dosage: ONE BOTH EYE EACH DROP/TIME
     Route: 047
     Dates: start: 20101111, end: 20101115
  4. LUMIGAN [Concomitant]
     Indication: OCULAR HYPERTENSION
     Dosage: RIGHT EYE
     Route: 047
     Dates: start: 20101111, end: 20101115
  5. SOLU-MEDROL [Concomitant]
     Indication: ACUTE FEBRILE NEUTROPHILIC DERMATOSIS
     Route: 041
     Dates: start: 20101111, end: 20101113
  6. RINDERON (BETAMETHASONE) [Concomitant]
     Indication: INFLAMMATION
     Dosage: ONE BOTH EYE EACH EYE DROP/TIME
     Route: 047
     Dates: start: 20101115, end: 20101129
  7. MEROPEN [Concomitant]
     Indication: SINUSITIS
     Route: 041
     Dates: start: 20101111, end: 20101120
  8. DIAMOX [Concomitant]
     Route: 048
     Dates: start: 20101111, end: 20101111
  9. ZOSYN [Concomitant]
     Indication: SINUSITIS
     Route: 041
     Dates: start: 20101111, end: 20101112
  10. ARBEKACIN [Concomitant]
     Route: 065

REACTIONS (2)
  - BRADYCARDIA [None]
  - ELECTROCARDIOGRAM QT PROLONGED [None]
